FAERS Safety Report 11900485 (Version 1)
Quarter: 2016Q1

REPORT INFORMATION
  Report Type: Report from Study
  Country: US (occurrence: US)
  Receive Date: 20160108
  Receipt Date: 20160108
  Transmission Date: 20160526
  Serious: No
  Sender: FDA-Public Use
  Company Number: US-ABBVIE-15P-163-1438840-00

PATIENT
  Age: 44 Year
  Sex: Female

DRUGS (2)
  1. MODERIBA [Suspect]
     Active Substance: RIBAVIRIN
     Indication: CHRONIC HEPATITIS C
     Dosage: 600MG IN THE MORNING; 400MG IN THE EVENING
     Route: 048
     Dates: start: 201505
  2. VIEKIRA PAK [Suspect]
     Active Substance: DASABUVIR\OMBITASVIR\PARITAPREVIR\RITONAVIR
     Indication: CHRONIC HEPATITIS C
     Route: 048
     Dates: start: 201505

REACTIONS (4)
  - Vaginal haemorrhage [Unknown]
  - Asthenia [Unknown]
  - Gait disturbance [Unknown]
  - Haematemesis [Unknown]

NARRATIVE: CASE EVENT DATE: 201507
